FAERS Safety Report 6704221-4 (Version None)
Quarter: 2010Q2

REPORT INFORMATION
  Report Type: 
  Country: None (occurrence: None)
  Receive Date: 20100423
  Receipt Date: 20100217
  Transmission Date: 20101027
  Serious: No
  Sender: FDA-Public Use
  Company Number: ALL1-2010-00376

PATIENT
  Age: 9 Year
  Sex: Male
  Weight: 26.3 kg

DRUGS (1)
  1. VYVANSE [Suspect]
     Indication: ATTENTION DEFICIT/HYPERACTIVITY DISORDER
     Dosage: 30 MG, 1X/DAY:QD, ORAL
     Route: 048
     Dates: start: 20090101

REACTIONS (5)
  - ANXIETY [None]
  - NIGHTMARE [None]
  - OBSESSIVE-COMPULSIVE DISORDER [None]
  - PERSONALITY CHANGE [None]
  - REPETITIVE SPEECH [None]
